FAERS Safety Report 24818385 (Version 1)
Quarter: 2025Q1

REPORT INFORMATION
  Report Type: Spontaneous
  Country: IT (occurrence: IT)
  Receive Date: 20250108
  Receipt Date: 20250108
  Transmission Date: 20250409
  Serious: Yes (Other)
  Sender: ACCORD
  Company Number: None

PATIENT
  Age: 42 Year
  Sex: Female
  Weight: 90 kg

DRUGS (13)
  1. FULVESTRANT [Suspect]
     Active Substance: FULVESTRANT
     Indication: Breast cancer
  2. DAFLON [Concomitant]
  3. Decapeptyl [Concomitant]
     Indication: Breast cancer
     Dosage: 3.75 MG/2 ML, IN PRE-FILLED SYRINGE
     Dates: start: 201701, end: 202406
  4. TAMOXIFEN [Concomitant]
     Active Substance: TAMOXIFEN
     Dates: start: 201707, end: 20220428
  5. EXEMESTANE [Concomitant]
     Active Substance: EXEMESTANE
     Indication: Breast cancer
     Dosage: 25 MG
     Dates: start: 202105, end: 202307
  6. LASIX [Concomitant]
     Active Substance: FUROSEMIDE
     Indication: Blood pressure increased
     Dosage: 25 MG
     Dates: start: 20241018, end: 20241018
  7. TACHIPIRINA [Concomitant]
     Active Substance: ACETAMINOPHEN
     Indication: Pyrexia
     Dates: start: 20241018, end: 20241019
  8. TAD [Concomitant]
     Dates: start: 20241019, end: 20241019
  9. ABEMACICLIB [Concomitant]
     Active Substance: ABEMACICLIB
     Dosage: 150 MG
     Dates: start: 202308, end: 202310
  10. ELIQUIS [Concomitant]
     Active Substance: APIXABAN
     Dosage: 2,5 MG
     Dates: start: 202309, end: 202409
  11. ABEMACICLIB [Concomitant]
     Active Substance: ABEMACICLIB
     Dosage: DOSAGE OF VERZENIOS HAS GONE FROM 150 MG TO 100 MG 1
     Dates: start: 20241024
  12. Decapeptyl [Concomitant]
     Indication: Breast cancer
     Dosage: 11.25 MG/2 ML, IN PRE-FILLED SYRINGE
     Dates: start: 202407, end: 202409
  13. ELIQUIS [Concomitant]
     Active Substance: APIXABAN
     Dosage: 5 MG
     Dates: start: 202309, end: 202409

REACTIONS (8)
  - Oropharyngeal discomfort [Recovered/Resolved]
  - Nausea [Recovered/Resolved]
  - Syncope [Recovered/Resolved]
  - Loss of consciousness [Recovered/Resolved]
  - Feeling cold [Recovered/Resolved]
  - Flushing [Recovered/Resolved]
  - Blood pressure increased [Recovered/Resolved]
  - Pyrexia [Recovered/Resolved]

NARRATIVE: CASE EVENT DATE: 20241018
